FAERS Safety Report 5069607-5 (Version None)
Quarter: 2006Q3

REPORT INFORMATION
  Report Type: 
  Country: None (occurrence: None)
  Receive Date: 20060803
  Receipt Date: 20060728
  Transmission Date: 20061208
  Serious: Yes (Hospitalization)
  Sender: FDA-Public Use
  Company Number: ES-BRISTOL-MYERS SQUIBB COMPANY-13458393

PATIENT
  Age: 44 Year
  Sex: Male

DRUGS (3)
  1. ZERIT [Suspect]
     Indication: HIV INFECTION
     Dates: start: 20021205, end: 20060313
  2. VIDEX [Suspect]
     Indication: HIV INFECTION
     Dates: start: 20021205, end: 20060313
  3. SUSTIVA [Suspect]
     Indication: HIV INFECTION
     Dates: end: 20060313

REACTIONS (1)
  - MYOCARDIAL INFARCTION [None]
